FAERS Safety Report 7302927-X (Version None)
Quarter: 2011Q1

REPORT INFORMATION
  Report Type: 
  Country: None (occurrence: None)
  Receive Date: 20110218
  Receipt Date: 20110210
  Transmission Date: 20110831
  Serious: Yes (Other)
  Sender: FDA-Public Use
  Company Number: US-AMGEN-USASP2011008172

PATIENT
  Age: 29 Year
  Sex: Female

DRUGS (2)
  1. ENBREL [Suspect]
  2. ENBREL [Suspect]
     Indication: ACCIDENTAL EXPOSURE
     Dosage: UNK
     Dates: start: 20110210, end: 20110210

REACTIONS (2)
  - INJURY ASSOCIATED WITH DEVICE [None]
  - INJECTION SITE HAEMORRHAGE [None]
